FAERS Safety Report 22615301 (Version 1)
Quarter: 2023Q2

REPORT INFORMATION
  Report Type: Report from Study
  Country: US (occurrence: US)
  Receive Date: 20230619
  Receipt Date: 20230619
  Transmission Date: 20230722
  Serious: No
  Sender: FDA-Public Use
  Company Number: US-002147023-NVSC2023US138822

PATIENT
  Sex: Female

DRUGS (1)
  1. AFINITOR [Suspect]
     Active Substance: EVEROLIMUS
     Indication: Carcinoid tumour
     Dosage: 10 MG, QD
     Route: 048
     Dates: start: 202305

REACTIONS (5)
  - Heart rate increased [Unknown]
  - Anxiety [Unknown]
  - Rash [Unknown]
  - Oral pain [Unknown]
  - Fatigue [Unknown]
